FAERS Safety Report 17811992 (Version 1)
Quarter: 2020Q2

REPORT INFORMATION
  Report Type: Spontaneous
  Country: PL (occurrence: PL)
  Receive Date: 20200521
  Receipt Date: 20200521
  Transmission Date: 20200714
  Serious: Yes (Other)
  Sender: FDA-Public Use
  Company Number: NVSC2020PL136290

PATIENT
  Age: 6 Year
  Sex: Female

DRUGS (4)
  1. PROGESTERONE. [Concomitant]
     Active Substance: PROGESTERONE
     Indication: PRODUCT USED FOR UNKNOWN INDICATION
     Dosage: UNK
     Route: 065
  2. OMNITROPE [Suspect]
     Active Substance: SOMATROPIN
     Indication: GROWTH RETARDATION
     Dosage: 17 U, QD (ONCE A DAY IN THE EVENING BEFORE FALLING ASLEEP) (17 UNITS/WEEK, (1.0 UNITS/KG/WEEK))
     Route: 058
  3. OMNITROPE [Suspect]
     Active Substance: SOMATROPIN
     Dosage: UNK UNK, QW (1.27 U/KG)
     Route: 058
  4. OMNITROPE [Suspect]
     Active Substance: SOMATROPIN
     Dosage: 1 MG, QD
     Route: 058

REACTIONS (17)
  - Growth retardation [Unknown]
  - HLA marker study positive [Unknown]
  - Breast enlargement [Unknown]
  - Coeliac disease [Unknown]
  - Thyroxine free increased [Unknown]
  - Blood immunoglobulin A increased [Unknown]
  - Blood oestrogen decreased [Unknown]
  - Hyperthyroidism [Unknown]
  - Condition aggravated [Unknown]
  - Anti-thyroid antibody positive [Unknown]
  - Primary hypogonadism [Unknown]
  - Ovarian failure [Unknown]
  - Uterine enlargement [Unknown]
  - Basedow^s disease [Unknown]
  - Hypothyroidism [Unknown]
  - Blood thyroid stimulating hormone decreased [Unknown]
  - Drug ineffective [Unknown]
